FAERS Safety Report 25614051 (Version 1)
Quarter: 2025Q3

REPORT INFORMATION
  Report Type: Spontaneous
  Country: US (occurrence: US)
  Receive Date: 20250728
  Receipt Date: 20250728
  Transmission Date: 20251020
  Serious: Yes (Death, Other)
  Sender: PFIZER
  Company Number: US-PFIZER INC-202500149530

PATIENT
  Age: 65 Year
  Sex: Male

DRUGS (25)
  1. INLYTA [Suspect]
     Active Substance: AXITINIB
  2. TIVOZANIB [Concomitant]
     Active Substance: TIVOZANIB
     Dates: start: 20250609
  3. CARVEDILOL [Concomitant]
     Active Substance: CARVEDILOL
  4. UREACIN [Concomitant]
  5. FOLATE SODIUM [Concomitant]
     Active Substance: FOLATE SODIUM
  6. IRON [Concomitant]
     Active Substance: IRON
  7. VITAMIN B12 [Concomitant]
     Active Substance: CYANOCOBALAMIN
  8. MINERALS\VITAMINS [Concomitant]
     Active Substance: MINERALS\VITAMINS
  9. AMLODIPINE [Concomitant]
     Active Substance: AMLODIPINE BESYLATE
  10. NOVOLOG [Concomitant]
     Active Substance: INSULIN ASPART
  11. TRAMADOL [Concomitant]
     Active Substance: TRAMADOL
  12. LEVOTHYROXINE [Concomitant]
     Active Substance: LEVOTHYROXINE
  13. VALSARTAN [Concomitant]
     Active Substance: VALSARTAN
  14. ATORVASTATIN [Concomitant]
     Active Substance: ATORVASTATIN
  15. PRASUGREL [Concomitant]
     Active Substance: PRASUGREL
  16. EUTHYROX [Concomitant]
     Active Substance: LEVOTHYROXINE SODIUM
  17. GABAPENTIN [Concomitant]
     Active Substance: GABAPENTIN
  18. ASPIRIN [Concomitant]
     Active Substance: ASPIRIN
  19. FUROSEMIDE [Concomitant]
     Active Substance: FUROSEMIDE
  20. HUMALOG KWIKPEN [Concomitant]
     Active Substance: INSULIN LISPRO
  21. TRESIBA [Concomitant]
     Active Substance: INSULIN DEGLUDEC
  22. PREDNISONE [Concomitant]
     Active Substance: PREDNISONE
  23. TRIAMCINOLONE [Concomitant]
     Active Substance: TRIAMCINOLONE
  24. FAMOTIDINE [Concomitant]
     Active Substance: FAMOTIDINE
  25. HYDROXYZINE [Concomitant]
     Active Substance: HYDROXYZINE HYDROCHLORIDE

REACTIONS (4)
  - Death [Fatal]
  - Aphonia [Not Recovered/Not Resolved]
  - Asthenia [Not Recovered/Not Resolved]
  - Decreased appetite [Not Recovered/Not Resolved]

NARRATIVE: CASE EVENT DATE: 20250623
